FAERS Safety Report 6620101-7 (Version None)
Quarter: 2010Q1

REPORT INFORMATION
  Report Type: 
  Country: None (occurrence: None)
  Receive Date: 20100309
  Receipt Date: 20100303
  Transmission Date: 20100710
  Serious: Yes (Other)
  Sender: FDA-Public Use
  Company Number: US-SANOFI-AVENTIS-2010SA008886

PATIENT
  Age: 71 Year
  Sex: Female
  Weight: 99.8 kg

DRUGS (7)
  1. AMBIEN CR [Suspect]
     Indication: INSOMNIA
     Route: 048
     Dates: start: 20100111, end: 20100111
  2. VERAPAMIL [Concomitant]
     Route: 065
     Dates: start: 20060101
  3. LISINOPRIL [Concomitant]
     Dosage: 20/25 MG
     Route: 065
     Dates: start: 20060101
  4. PROPRANOLOL HYDROCHLORIDE [Concomitant]
     Route: 065
     Dates: start: 20060101
  5. GLYBURIDE [Concomitant]
     Route: 065
     Dates: start: 20080101
  6. SIMVASTATIN [Concomitant]
     Route: 065
     Dates: start: 20060101
  7. OXYBUTYNIN [Concomitant]
     Indication: INCONTINENCE
     Route: 065
     Dates: start: 20080101

REACTIONS (6)
  - CONTUSION [None]
  - FALL [None]
  - FEELING ABNORMAL [None]
  - HAEMORRHAGE [None]
  - LIP SWELLING [None]
  - SUTURE RUPTURE [None]
